FAERS Safety Report 4502190-9 (Version None)
Quarter: 2004Q4

REPORT INFORMATION
  Report Type: 
  Country: None (occurrence: None)
  Receive Date: 20041116
  Receipt Date: 20041110
  Transmission Date: 20050328
  Serious: Yes (Hospitalization)
  Sender: FDA-Public Use
  Company Number: BE-ROCHE-385839

PATIENT
  Age: 55 Year
  Sex: Male

DRUGS (7)
  1. DACLIZUMAB [Suspect]
     Route: 042
     Dates: start: 20041006
  2. MYCOPHENOLATE MOFETIL [Suspect]
     Route: 048
     Dates: start: 20041006
  3. CYCLOSPORINE [Suspect]
     Route: 048
     Dates: start: 20041006
  4. CORTICOSTEROID [Suspect]
     Dosage: DRUG NAME REPORTED AS HP
     Route: 048
     Dates: start: 20041006
  5. METOPROLOL SUCCINATE [Concomitant]
     Route: 048
     Dates: start: 20041103
  6. AMLOR [Concomitant]
     Dates: start: 20041025
  7. INSULIN [Concomitant]

REACTIONS (1)
  - BLOOD CREATININE INCREASED [None]
